FAERS Safety Report 9340955 (Version 1)
Quarter: 2013Q2

REPORT INFORMATION
  Report Type: Spontaneous
  Country: FR (occurrence: FR)
  Receive Date: 20130610
  Receipt Date: 20130610
  Transmission Date: 20140414
  Serious: Yes (Hospitalization)
  Sender: FDA-Public Use
  Company Number: FR-ACTELION-A-CH2013-83971

PATIENT
  Age: 78 Year
  Sex: Female

DRUGS (11)
  1. TRACLEER [Suspect]
     Indication: PULMONARY ARTERIAL HYPERTENSION
     Dosage: 125 MG, BID
     Route: 048
     Dates: start: 20130412, end: 20130414
  2. TRACLEER [Suspect]
     Dosage: 62.5 MG, BID
     Route: 048
     Dates: start: 201202, end: 20130412
  3. REVATIO [Concomitant]
     Dosage: 20 MG, TID
     Route: 048
     Dates: start: 2011
  4. SPIRIVA [Concomitant]
     Route: 055
  5. FORADIL [Concomitant]
  6. ALDACTAZINE [Concomitant]
     Route: 048
  7. DIGOXINE [Concomitant]
     Dosage: 0.25 MG, UNK
     Route: 048
  8. ISOPTINE [Concomitant]
     Dosage: 40 MG, UNK
     Route: 048
  9. PREVISCAN [Concomitant]
     Route: 048
  10. LASILIX [Concomitant]
     Dosage: 40 MG, UNK
     Route: 048
  11. DIFFU-K [Concomitant]

REACTIONS (4)
  - Erythema [Recovering/Resolving]
  - Arthralgia [Recovering/Resolving]
  - Hyperthermia [Recovering/Resolving]
  - Joint effusion [Recovering/Resolving]
